FAERS Safety Report 9081781 (Version 1)
Quarter: 2013Q1

REPORT INFORMATION
  Report Type: Spontaneous
  Country: US (occurrence: US)
  Receive Date: 20130218
  Receipt Date: 20130218
  Transmission Date: 20140127
  Serious: Yes (Other)
  Sender: FDA-Public Use
  Company Number: US-PFIZER INC-2013058612

PATIENT
  Age: 8 Year
  Sex: Male
  Weight: 55.78 kg

DRUGS (2)
  1. GENOTROPIN [Suspect]
     Indication: HYPOPITUITARISM
     Dosage: 1 MG, 1X/DAY
     Dates: start: 200803
  2. DDAVP [Concomitant]
     Indication: DIABETES INSIPIDUS
     Dosage: 0.1 MG, 2X/DAY
     Dates: start: 20080211

REACTIONS (1)
  - Hypothyroidism [Recovered/Resolved]
